FAERS Safety Report 18213442 (Version 1)
Quarter: 2020Q3

REPORT INFORMATION
  Report Type: Spontaneous
  Country: IT (occurrence: IT)
  Receive Date: 20200831
  Receipt Date: 20200831
  Transmission Date: 20201103
  Serious: Yes (Death)
  Sender: FDA-Public Use
  Company Number: IT-CELGENEUS-ITA-20200806240

PATIENT
  Age: 56 Year
  Sex: Male
  Weight: 80 kg

DRUGS (2)
  1. DEXAMETHASONE. [Suspect]
     Active Substance: DEXAMETHASONE
     Indication: PLASMA CELL MYELOMA
     Dosage: CYCLICAL
     Route: 048
     Dates: start: 20200701, end: 20200719
  2. IMNOVID [Suspect]
     Active Substance: POMALIDOMIDE
     Indication: PLASMA CELL MYELOMA
     Dosage: CYCLICAL
     Route: 048
     Dates: start: 20200701, end: 20200719

REACTIONS (5)
  - Thrombocytopenia [Fatal]
  - Neutropenia [Fatal]
  - Diarrhoea [Fatal]
  - Pneumonitis [Fatal]
  - Pyrexia [Fatal]

NARRATIVE: CASE EVENT DATE: 20200718
